FAERS Safety Report 8312255-1 (Version None)
Quarter: 2012Q2

REPORT INFORMATION
  Report Type: 
  Country: None (occurrence: None)
  Receive Date: 20120425
  Receipt Date: 20120417
  Transmission Date: 20120825
  Serious: Yes (Other)
  Sender: FDA-Public Use
  Company Number: US-CELGENEUS-163-20785-12041997

PATIENT
  Sex: Female
  Weight: 74 kg

DRUGS (2)
  1. THALOMID [Suspect]
     Route: 048
     Dates: start: 20051001, end: 20060201
  2. DEXAMETHASONE [Concomitant]
     Route: 065
     Dates: start: 20051001, end: 20060201

REACTIONS (2)
  - CARDIOVASCULAR DISORDER [None]
  - NEUROPATHY PERIPHERAL [None]
